FAERS Safety Report 19645691 (Version 1)
Quarter: 2021Q3

REPORT INFORMATION
  Report Type: Spontaneous
  Country: US (occurrence: US)
  Receive Date: 20210731
  Receipt Date: 20210731
  Transmission Date: 20211014
  Serious: Yes (Other)
  Sender: FDA-Public Use
  Company Number: None

PATIENT
  Age: 38 Year
  Sex: Female
  Weight: 81 kg

DRUGS (7)
  1. PROBIOTICS [Concomitant]
     Active Substance: PROBIOTICS NOS
  2. FLONASE [Concomitant]
     Active Substance: FLUTICASONE PROPIONATE
  3. XYZAL [Concomitant]
     Active Substance: LEVOCETIRIZINE DIHYDROCHLORIDE
  4. AIMOVIG [Suspect]
     Active Substance: ERENUMAB-AOOE
     Indication: MIGRAINE
     Dosage: ?          QUANTITY:1 INJECTION(S);OTHER FREQUENCY:1X/MONTH;?
     Route: 030
     Dates: start: 20200701, end: 20210726
  5. BIRTH CONTROL [Concomitant]
     Active Substance: UNSPECIFIED INGREDIENT
  6. SINGULAIR [Concomitant]
     Active Substance: MONTELUKAST SODIUM
  7. AZELESTINE [Concomitant]
     Active Substance: AZELASTINE

REACTIONS (4)
  - Anaphylactic reaction [None]
  - Dyspnoea [None]
  - Speech disorder [None]
  - Pharyngeal swelling [None]

NARRATIVE: CASE EVENT DATE: 20210726
